FAERS Safety Report 6760582-1 (Version None)
Quarter: 2010Q2

REPORT INFORMATION
  Report Type: 
  Country: None (occurrence: None)
  Receive Date: 20100608
  Receipt Date: 20100530
  Transmission Date: 20101027
  Serious: Yes (Other)
  Sender: FDA-Public Use
  Company Number: US-PFIZER INC-2010067988

PATIENT
  Sex: Female
  Weight: 61.224 kg

DRUGS (2)
  1. ALPRAZOLAM [Suspect]
     Indication: NERVOUSNESS
     Dosage: 0.5 MG, 1X/DAY
     Route: 048
  2. ALPRAZOLAM [Suspect]
     Indication: ANXIETY

REACTIONS (1)
  - NEPHROLITHIASIS [None]
